FAERS Safety Report 7178750-6 (Version None)
Quarter: 2010Q4

REPORT INFORMATION
  Report Type: 
  Country: None (occurrence: None)
  Receive Date: 20101221
  Receipt Date: 20101208
  Transmission Date: 20110411
  Serious: Yes (Hospitalization)
  Sender: FDA-Public Use
  Company Number: US-ELI_LILLY_AND_COMPANY-US201012002280

PATIENT
  Sex: Female

DRUGS (11)
  1. FORTEO [Suspect]
     Indication: OSTEOPOROSIS
     Dosage: 20 UG, DAILY (1/D)
     Route: 065
     Dates: start: 20101104, end: 20101117
  2. CALCIUM [Concomitant]
     Dosage: 3 D/F, DAILY (1/D)
  3. VITAMIN D [Concomitant]
     Dosage: 3 D/F, DAILY (1/D)
  4. PROZAC [Concomitant]
  5. PLAVIX [Concomitant]
  6. LEVOTHYROXINE SODIUM [Concomitant]
     Indication: THYROIDECTOMY
  7. PRILOSEC [Concomitant]
  8. LISINOPRIL [Concomitant]
  9. DILTIAZEM [Concomitant]
     Dosage: 120 MG, 2/D
  10. CLONIDINE [Concomitant]
     Indication: BLOOD PRESSURE
     Dosage: UNK, WEEKLY (1/W)
  11. MAGNESIUM [Concomitant]
     Dosage: 1 D/F, 2/D

REACTIONS (11)
  - BLOOD CALCIUM INCREASED [None]
  - BLOOD MAGNESIUM DECREASED [None]
  - BLOOD POTASSIUM DECREASED [None]
  - DISORIENTATION [None]
  - DIZZINESS [None]
  - DRY MOUTH [None]
  - DYSARTHRIA [None]
  - ELECTROLYTE IMBALANCE [None]
  - FALL [None]
  - GAIT DISTURBANCE [None]
  - MALAISE [None]
